FAERS Safety Report 19904815 (Version 1)
Quarter: 2021Q4

REPORT INFORMATION
  Report Type: Other
  Country: US (occurrence: US)
  Receive Date: 20211001
  Receipt Date: 20211001
  Transmission Date: 20220303
  Serious: Yes (Death, Other)
  Sender: FDA-Public Use
  Company Number: US-ROCHE-2918686

PATIENT

DRUGS (5)
  1. CAPECITABINE [Suspect]
     Active Substance: CAPECITABINE
     Indication: Adenocarcinoma
     Dosage: DAY 1-14, EVERY 3 WEEKS
     Route: 048
  2. NIVOLUMAB [Suspect]
     Active Substance: NIVOLUMAB
     Indication: Adenocarcinoma
     Route: 042
  3. OXALIPLATIN [Suspect]
     Active Substance: OXALIPLATIN
     Indication: Adenocarcinoma
     Dosage: ON DAY 1
     Route: 042
  4. LEUCOVORIN [Suspect]
     Active Substance: LEUCOVORIN
     Indication: Adenocarcinoma
     Dosage: DAY 1
     Route: 042
  5. FLUOROURACIL [Suspect]
     Active Substance: FLUOROURACIL
     Indication: Adenocarcinoma
     Route: 042

REACTIONS (33)
  - Diarrhoea [Fatal]
  - Asthenia [Fatal]
  - Decreased appetite [Fatal]
  - Pulmonary embolism [Fatal]
  - Cerebrovascular accident [Fatal]
  - Febrile neutropenia [Fatal]
  - Gastrointestinal inflammation [Fatal]
  - Pneumonia [Fatal]
  - Gastrointestinal haemorrhage [Fatal]
  - Gastrointestinal toxicity [Fatal]
  - Infection [Fatal]
  - Gastrointestinal inflammation [Fatal]
  - Pneumonitis [Fatal]
  - Septic shock [Fatal]
  - Cerebrovascular accident [Fatal]
  - Cerebral infarction [Fatal]
  - Thrombosis mesenteric vessel [Fatal]
  - Disseminated intravascular coagulation [Fatal]
  - Nausea [Unknown]
  - Neuropathy peripheral [Unknown]
  - Vomiting [Unknown]
  - Fatigue [Unknown]
  - Anaemia [Unknown]
  - Thrombocytopenia [Unknown]
  - Platelet count decreased [Unknown]
  - Peripheral sensory neuropathy [Unknown]
  - Aspartate aminotransferase increased [Unknown]
  - White blood cell count decreased [Unknown]
  - Alanine aminotransferase increased [Unknown]
  - Palmar-plantar erythrodysaesthesia syndrome [Unknown]
  - Neutrophil count decreased [Unknown]
  - Neutropenia [Unknown]
  - Lipase increased [Unknown]
